FAERS Safety Report 9011414 (Version 7)
Quarter: 2013Q2

REPORT INFORMATION
  Report Type: Report from Study
  Country: US (occurrence: US)
  Receive Date: 20130108
  Receipt Date: 20130613
  Transmission Date: 20140414
  Serious: Yes (Other)
  Sender: FDA-Public Use
  Company Number: US-VERTEX PHARMACEUTICALS INC.-2013-000219

PATIENT
  Age: 59 Year
  Sex: Male
  Weight: 91 kg

DRUGS (8)
  1. VX-950 (TELAPREVIR) [Suspect]
     Indication: HEPATITIS C
     Dosage: 750 MG, TID
     Route: 048
     Dates: start: 2012, end: 201304
  2. PEGASYS [Suspect]
     Indication: HEPATITIS C
     Dosage: 180 ?G, QW
     Route: 058
     Dates: start: 2012, end: 201304
  3. RIBASPHERE [Suspect]
     Indication: HEPATITIS C
     Dosage: 600 MG, BID
     Route: 048
     Dates: start: 2012, end: 201304
  4. AMLODIPINE BESYLATE [Concomitant]
     Dosage: 10 MG, QD
     Route: 048
  5. FLUOXETINE HCL [Concomitant]
     Dosage: 1 DF, QD
     Route: 048
  6. PRAVASTATIN SODIUM [Concomitant]
     Dosage: 20 MG, QD
     Route: 048
  7. PRILOSEC [Concomitant]
     Dosage: 20 MG, QD
     Route: 048
  8. ASPIRIN (E.C.) [Concomitant]
     Dosage: 81 MG, QD
     Route: 048

REACTIONS (5)
  - Rash pustular [Recovered/Resolved]
  - Gingival pain [Unknown]
  - Dry mouth [Unknown]
  - Fatigue [Not Recovered/Not Resolved]
  - Pruritus [Unknown]
